FAERS Safety Report 4697189-6 (Version None)
Quarter: 2005Q2

REPORT INFORMATION
  Report Type: 
  Country: None (occurrence: None)
  Receive Date: 20050622
  Receipt Date: 20050609
  Transmission Date: 20051028
  Serious: Yes (Death)
  Sender: FDA-Public Use
  Company Number: BE-JNJFOC-20050505413

PATIENT
  Sex: Male
  Weight: 53 kg

DRUGS (2)
  1. DURAGESIC-100 [Suspect]
     Indication: PAIN
     Route: 062
  2. DURAGESIC-100 [Suspect]
     Indication: PALLIATIVE CARE
     Route: 062

REACTIONS (4)
  - APPLICATION SITE ERYTHEMA [None]
  - BURNING SENSATION [None]
  - MALIGNANT NEOPLASM PROGRESSION [None]
  - PAIN [None]
